FAERS Safety Report 16271609 (Version 1)
Quarter: 2019Q2

REPORT INFORMATION
  Report Type: Spontaneous
  Country: US (occurrence: US)
  Receive Date: 20190506
  Receipt Date: 20190506
  Transmission Date: 20190711
  Serious: No
  Sender: FDA-Public Use
  Company Number: US-HETERO CORPORATE-HET2019US00546

PATIENT
  Age: 74 Year
  Sex: Female
  Weight: 49 kg

DRUGS (1)
  1. IRBESARTAN. [Suspect]
     Active Substance: IRBESARTAN
     Indication: HYPERTENSION
     Dosage: 75 MG, ONE TABLET AT NIGHT
     Dates: start: 2019

REACTIONS (1)
  - Dizziness [Not Recovered/Not Resolved]

NARRATIVE: CASE EVENT DATE: 201904
